FAERS Safety Report 11351307 (Version 1)
Quarter: 2015Q3

REPORT INFORMATION
  Report Type: Spontaneous
  Country: US (occurrence: US)
  Receive Date: 20150807
  Receipt Date: 20150807
  Transmission Date: 20151125
  Serious: No
  Sender: FDA-Public Use
  Company Number: US-JNJFOC-20150303143

PATIENT
  Age: 73 Year
  Sex: Female
  Weight: 72.58 kg

DRUGS (6)
  1. VITAMIN D3 [Concomitant]
     Active Substance: CHOLECALCIFEROL
     Indication: ROUTINE HEALTH MAINTENANCE
     Dosage: 6 MONTHS
     Route: 065
  2. WOMENS ROGAINE UNSCENTED [Suspect]
     Active Substance: MINOXIDIL
     Route: 061
  3. WOMENS ROGAINE UNSCENTED [Suspect]
     Active Substance: MINOXIDIL
     Indication: HAIR GROWTH ABNORMAL
     Dosage: HALF CAP SIZE AMOUNT
     Route: 061
     Dates: start: 20150108
  4. BIOTIN [Concomitant]
     Active Substance: BIOTIN
     Indication: UNEVALUABLE EVENT
     Dosage: 6 MONTHS
     Route: 065
  5. CALCIUM [Concomitant]
     Active Substance: CALCIUM
     Indication: ROUTINE HEALTH MAINTENANCE
     Dosage: 6 MONTHS
     Route: 065
  6. MULTIVITAMINS [Concomitant]
     Active Substance: VITAMINS
     Indication: ROUTINE HEALTH MAINTENANCE
     Route: 065

REACTIONS (4)
  - Hair texture abnormal [Not Recovered/Not Resolved]
  - Product quality issue [Unknown]
  - Product use issue [Unknown]
  - Underdose [Unknown]

NARRATIVE: CASE EVENT DATE: 20150108
